FAERS Safety Report 20840650 (Version 2)
Quarter: 2022Q4

REPORT INFORMATION
  Report Type: Spontaneous
  Country: US (occurrence: US)
  Receive Date: 20220517
  Receipt Date: 20221020
  Transmission Date: 20230112
  Serious: No
  Sender: FDA-Public Use
  Company Number: US-PFIZER INC-2021066387

PATIENT
  Age: 54 Year
  Sex: Female

DRUGS (1)
  1. XELJANZ [Suspect]
     Active Substance: TOFACITINIB CITRATE
     Dosage: 10 MG, 2X/DAY (10 MG IN THE MORNING AND 10 MG AT NIGHT)

REACTIONS (2)
  - Malaise [Unknown]
  - Illness [Unknown]
